FAERS Safety Report 17153910 (Version 2)
Quarter: 2019Q4

REPORT INFORMATION
  Report Type: Report from Study
  Country: None (occurrence: DE)
  Receive Date: 20191213
  Receipt Date: 20191220
  Transmission Date: 20200122
  Serious: Yes (Hospitalization)
  Sender: FDA-Public Use
  Company Number: DE-ABBVIE-19P-062-3184907-00

PATIENT
  Age: 45 Year
  Sex: Male

DRUGS (8)
  1. VALSACOR COMP [Concomitant]
     Active Substance: HYDROCHLOROTHIAZIDE\VALSARTAN
     Indication: HYPERTONIA
     Dosage: 320/25 MG
     Route: 048
     Dates: start: 2003
  2. INNOVAIR [Concomitant]
     Active Substance: BECLOMETHASONE DIPROPIONATE\FORMOTEROL
     Indication: ASTHMA
     Dosage: 100/6 UG
     Route: 055
     Dates: start: 2011
  3. DEXA [Concomitant]
     Indication: SEASONAL ALLERGY
     Route: 047
     Dates: start: 2013
  4. FEXOFENADINE [Concomitant]
     Active Substance: FEXOFENADINE HYDROCHLORIDE
     Indication: SEASONAL ALLERGY
     Route: 048
     Dates: start: 1999
  5. AMLODIPIN [Concomitant]
     Active Substance: AMLODIPINE BESYLATE
     Indication: HYPERTONIA
     Route: 048
     Dates: start: 2003
  6. UPADACITINIB [Suspect]
     Active Substance: UPADACITINIB
     Indication: DERMATITIS ATOPIC
     Route: 048
     Dates: start: 20190918, end: 20191125
  7. ATORVASTIN [Concomitant]
     Active Substance: ATORVASTATIN
     Indication: HYPERLIPIDAEMIA
     Route: 048
     Dates: start: 2018
  8. EUBOS UREA [Concomitant]
     Indication: DRY SKIN PROPHYLAXIS
     Dosage: 1 MOISTURIZER APPLICATION
     Route: 061
     Dates: start: 20190909

REACTIONS (1)
  - Epididymitis [Not Recovered/Not Resolved]

NARRATIVE: CASE EVENT DATE: 20191126
